FAERS Safety Report 10377645 (Version 2)
Quarter: 2014Q3

REPORT INFORMATION
  Report Type: Report from Study
  Country: BR (occurrence: BR)
  Receive Date: 20140812
  Receipt Date: 20140825
  Transmission Date: 20150326
  Serious: Yes (Other)
  Sender: FDA-Public Use
  Company Number: PHHY2014BR099030

PATIENT
  Age: 51 Year
  Sex: Female
  Weight: 80 kg

DRUGS (3)
  1. SANDOSTATIN LAR DEPOT [Suspect]
     Active Substance: OCTREOTIDE ACETATE
     Indication: ACROMEGALY
     Dosage: UNK UKN,30 TO 30 DAYS
  2. SIMVASTATIN. [Concomitant]
     Active Substance: SIMVASTATIN
     Dosage: UNK UKN, UNK
  3. FLUOXETINE [Concomitant]
     Active Substance: FLUOXETINE\FLUOXETINE HYDROCHLORIDE
     Indication: DEPRESSION
     Dosage: 1 DF, A DAY

REACTIONS (6)
  - Alopecia [Recovered/Resolved]
  - Pyrexia [Recovered/Resolved]
  - Thyroid neoplasm [Recovered/Resolved]
  - Pain [Recovered/Resolved]
  - Influenza [Recovered/Resolved]
  - Feeling abnormal [Recovered/Resolved]

NARRATIVE: CASE EVENT DATE: 20140731
